FAERS Safety Report 14640841 (Version 11)
Quarter: 2019Q2

REPORT INFORMATION
  Report Type: Spontaneous
  Country: GR (occurrence: GR)
  Receive Date: 20180315
  Receipt Date: 20190516
  Transmission Date: 20190711
  Serious: Yes (Death, Life-Threatening, Other)
  Sender: FDA-Public Use
  Company Number: GR-ELI_LILLY_AND_COMPANY-GR201803005588

PATIENT
  Age: 25 Year
  Sex: Male

DRUGS (18)
  1. MOCLOBEMIDE [Interacting]
     Active Substance: MOCLOBEMIDE
     Indication: DEPRESSION
     Dosage: UNK UNK, UNKNOWN
     Route: 065
  2. VALPROIC ACID. [Interacting]
     Active Substance: VALPROIC ACID
     Indication: OVERDOSE
  3. MOCLOBEMIDE [Interacting]
     Active Substance: MOCLOBEMIDE
     Indication: OVERDOSE
  4. QUETIAPINE. [Interacting]
     Active Substance: QUETIAPINE
     Indication: DEPRESSION
     Dosage: UNK UNK, UNKNOWN
     Route: 048
  5. CITALOPRAM HYDROBROMIDE. [Interacting]
     Active Substance: CITALOPRAM HYDROBROMIDE
     Indication: OVERDOSE
  6. ALPRAZOLAM. [Interacting]
     Active Substance: ALPRAZOLAM
     Indication: DEPRESSION
     Dosage: UNK UNK, UNKNOWN
     Route: 048
  7. FLUOXETINE HYDROCHLORIDE. [Suspect]
     Active Substance: FLUOXETINE HYDROCHLORIDE
     Indication: DEPRESSION
     Dosage: UNK UNK, UNKNOWN
     Route: 065
  8. FLUOXETINE HYDROCHLORIDE. [Interacting]
     Active Substance: FLUOXETINE HYDROCHLORIDE
     Indication: OVERDOSE
  9. VALPROIC ACID. [Interacting]
     Active Substance: VALPROIC ACID
     Indication: DEPRESSION
     Dosage: UNK UNK, UNKNOWN
     Route: 048
  10. ALPRAZOLAM. [Interacting]
     Active Substance: ALPRAZOLAM
     Indication: OVERDOSE
  11. PROPRANOLOL [Interacting]
     Active Substance: PROPRANOLOL HYDROCHLORIDE
     Indication: OVERDOSE
     Dosage: UNK, UNKNOWN
     Route: 065
  12. CITALOPRAM [Interacting]
     Active Substance: CITALOPRAM HYDROBROMIDE
     Indication: DEPRESSION
     Dosage: UNK UNK, UNKNOWN
     Route: 065
  13. PERINDOPRIL [Interacting]
     Active Substance: PERINDOPRIL
     Indication: OVERDOSE
     Dosage: UNK, UNKNOWN
     Route: 065
  14. DESLORATADINE. [Interacting]
     Active Substance: DESLORATADINE
     Indication: OVERDOSE
     Dosage: UNK, UNKNOWN
     Route: 065
  15. CITALOPRAM [Interacting]
     Active Substance: CITALOPRAM HYDROBROMIDE
     Indication: OVERDOSE
  16. QUETIAPINE. [Interacting]
     Active Substance: QUETIAPINE
     Indication: OVERDOSE
  17. CITALOPRAM HYDROBROMIDE. [Interacting]
     Active Substance: CITALOPRAM HYDROBROMIDE
     Indication: DEPRESSION
     Dosage: UNK, UNKNOWN
     Route: 065
  18. FLURBIPROFEN. [Interacting]
     Active Substance: FLURBIPROFEN
     Indication: OVERDOSE
     Dosage: UNK, UNKNOWN
     Route: 065

REACTIONS (9)
  - Drug interaction [Fatal]
  - Ischaemic cerebral infarction [Fatal]
  - Intentional overdose [Fatal]
  - Arrhythmia [Fatal]
  - Toxicity to various agents [Fatal]
  - Contraindicated product administered [Fatal]
  - Sudden death [Fatal]
  - Hypertrophic cardiomyopathy [Fatal]
  - Electrocardiogram QT prolonged [Fatal]
